FAERS Safety Report 6831315-5 (Version None)
Quarter: 2010Q3

REPORT INFORMATION
  Report Type: 
  Country: None (occurrence: None)
  Receive Date: 20100712
  Receipt Date: 20100705
  Transmission Date: 20110219
  Serious: Yes (Other)
  Sender: FDA-Public Use
  Company Number: FR-PFIZER INC-2010010072

PATIENT
  Age: 53 Year
  Sex: Female
  Weight: 59.864 kg

DRUGS (1)
  1. AROMASIN [Suspect]
     Indication: BREAST CANCER
     Dosage: 1 DF, 1X/DAY
     Dates: start: 20091010, end: 20091225

REACTIONS (2)
  - ONYCHOMADESIS [None]
  - TOOTH FRACTURE [None]
